FAERS Safety Report 6609622-0 (Version None)
Quarter: 2010Q1

REPORT INFORMATION
  Report Type: 
  Country: None (occurrence: None)
  Receive Date: 20100302
  Receipt Date: 20100217
  Transmission Date: 20100710
  Serious: Yes (Hospitalization, Other)
  Sender: FDA-Public Use
  Company Number: JP-PFIZER INC-2010010308

PATIENT
  Age: 76 Year
  Sex: Female

DRUGS (14)
  1. SERTRALINE HCL [Suspect]
     Indication: DEPRESSED MOOD
     Dosage: UNK
  2. SERTRALINE HCL [Suspect]
     Indication: INSOMNIA
  3. SERTRALINE HCL [Suspect]
     Indication: FATIGUE
  4. SULPIRIDE [Suspect]
     Indication: DEPRESSED MOOD
     Dosage: UNK MG, 1X/DAY
  5. SULPIRIDE [Suspect]
     Indication: INSOMNIA
  6. SULPIRIDE [Suspect]
     Indication: FATIGUE
  7. ALPRAZOLAM [Suspect]
     Dosage: UNK
  8. ZOPICLONE [Suspect]
     Indication: DEPRESSED MOOD
     Dosage: UNK
  9. ZOPICLONE [Suspect]
     Indication: INSOMNIA
  10. ZOPICLONE [Suspect]
     Indication: FATIGUE
  11. ETIZOLAM [Suspect]
     Indication: DEPRESSED MOOD
     Dosage: UNK
  12. ETIZOLAM [Suspect]
     Indication: INSOMNIA
  13. ETIZOLAM [Suspect]
     Indication: FATIGUE
  14. NIFEDIPINE [Suspect]
     Indication: HYPERTENSION
     Dosage: UNK

REACTIONS (5)
  - CONTUSION [None]
  - DRUG INTERACTION [None]
  - FALL [None]
  - HEPATIC FUNCTION ABNORMAL [None]
  - SEROTONIN SYNDROME [None]
